FAERS Safety Report 4984692-4 (Version None)
Quarter: 2006Q2

REPORT INFORMATION
  Report Type: 
  Country: None (occurrence: None)
  Receive Date: 20060427
  Receipt Date: 20050414
  Transmission Date: 20061013
  Serious: Yes (Hospitalization, Other)
  Sender: FDA-Public Use
  Company Number: US-MERCK-0504USA02784

PATIENT
  Age: 35 Year
  Sex: Female
  Weight: 68 kg

DRUGS (1)
  1. VIOXX [Suspect]
     Indication: ARTHRITIS
     Route: 048
     Dates: start: 20020101, end: 20030101

REACTIONS (10)
  - ASTHENIA [None]
  - CHEST PAIN [None]
  - DIVERTICULITIS [None]
  - GASTRIC PERFORATION [None]
  - GASTROOESOPHAGEAL REFLUX DISEASE [None]
  - INTESTINAL PERFORATION [None]
  - PALPITATIONS [None]
  - THROMBOSIS [None]
  - UTERINE CYST [None]
  - VOMITING [None]
